FAERS Safety Report 7016895-1 (Version None)
Quarter: 2010Q3

REPORT INFORMATION
  Report Type: 
  Country: None (occurrence: None)
  Receive Date: 20100927
  Receipt Date: 20100920
  Transmission Date: 20110219
  Serious: Yes (Other)
  Sender: FDA-Public Use
  Company Number: US-AMGEN-QUU419211

PATIENT
  Sex: Male
  Weight: 115 kg

DRUGS (8)
  1. NPLATE [Suspect]
     Indication: IDIOPATHIC THROMBOCYTOPENIC PURPURA
     Route: 058
     Dates: start: 20090327, end: 20090619
  2. CELLCEPT [Concomitant]
     Dates: start: 20050801
  3. TOPROL-XL [Concomitant]
     Dates: start: 20050101
  4. LORTAB [Concomitant]
     Dates: start: 20050101
  5. PREDNISONE [Concomitant]
  6. CORTICOSTEROIDS [Concomitant]
     Dates: start: 19990101
  7. IMMU-G [Concomitant]
     Route: 042
     Dates: start: 20020101, end: 20020101
  8. PROMACTA [Concomitant]
     Dates: start: 20090728

REACTIONS (3)
  - GINGIVAL BLEEDING [None]
  - THERAPEUTIC RESPONSE DECREASED [None]
  - THROMBOCYTOPENIA [None]
